FAERS Safety Report 12895394 (Version 5)
Quarter: 2018Q4

REPORT INFORMATION
  Report Type: Spontaneous
  Country: US (occurrence: US)
  Receive Date: 20161030
  Receipt Date: 20181228
  Transmission Date: 20190204
  Serious: Yes (Hospitalization, Other)
  Sender: FDA-Public Use
  Company Number: US-ASTRAZENECA-2016SF10734

PATIENT
  Age: 22370 Day
  Sex: Female
  Weight: 45.4 kg

DRUGS (10)
  1. TAGRISSO [Suspect]
     Active Substance: OSIMERTINIB
     Indication: METASTASES TO ADRENALS
     Route: 048
     Dates: start: 20160901
  2. TAGRISSO [Suspect]
     Active Substance: OSIMERTINIB
     Indication: METASTASES TO ADRENALS
     Dosage: 80.0MG UNKNOWN
     Route: 048
  3. TAGRISSO [Suspect]
     Active Substance: OSIMERTINIB
     Indication: METASTASES TO CENTRAL NERVOUS SYSTEM
     Dosage: 80 MG TAKES 2 TABLETS BY MOUTH ONCE DAILY. UNKNOWN
     Route: 048
  4. VASELINE PURE [Concomitant]
     Active Substance: PETROLATUM
     Dosage: AS REQUIRED
  5. TAGRISSO [Suspect]
     Active Substance: OSIMERTINIB
     Indication: METASTASES TO CENTRAL NERVOUS SYSTEM
     Route: 048
     Dates: start: 20160901
  6. TAGRISSO [Suspect]
     Active Substance: OSIMERTINIB
     Indication: LUNG NEOPLASM MALIGNANT
     Route: 048
     Dates: start: 20160901
  7. TAGRISSO [Suspect]
     Active Substance: OSIMERTINIB
     Indication: METASTASES TO CENTRAL NERVOUS SYSTEM
     Dosage: 80.0MG UNKNOWN
     Route: 048
  8. TAGRISSO [Suspect]
     Active Substance: OSIMERTINIB
     Indication: LUNG NEOPLASM MALIGNANT
     Dosage: 80.0MG UNKNOWN
     Route: 048
  9. TAGRISSO [Suspect]
     Active Substance: OSIMERTINIB
     Indication: LUNG NEOPLASM MALIGNANT
     Dosage: 80 MG TAKES 2 TABLETS BY MOUTH ONCE DAILY. UNKNOWN
     Route: 048
  10. TAGRISSO [Suspect]
     Active Substance: OSIMERTINIB
     Indication: METASTASES TO ADRENALS
     Dosage: 80 MG TAKES 2 TABLETS BY MOUTH ONCE DAILY. UNKNOWN
     Route: 048

REACTIONS (14)
  - Spinal fracture [Unknown]
  - Lacrimation increased [Not Recovered/Not Resolved]
  - Dry eye [Recovered/Resolved]
  - Malignant neoplasm progression [Unknown]
  - Paraesthesia [Not Recovered/Not Resolved]
  - Hypoaesthesia [Unknown]
  - Product dose omission [Not Recovered/Not Resolved]
  - Eye infection [Recovered/Resolved]
  - Hypoaesthesia [Not Recovered/Not Resolved]
  - Intentional product misuse [Unknown]
  - Gait disturbance [Unknown]
  - Somnolence [Unknown]
  - Paronychia [Unknown]
  - Asthenia [Unknown]

NARRATIVE: CASE EVENT DATE: 20180413
